FAERS Safety Report 21837040 (Version 1)
Quarter: 2023Q1

REPORT INFORMATION
  Report Type: Report from Study
  Country: US (occurrence: US)
  Receive Date: 20230109
  Receipt Date: 20230109
  Transmission Date: 20230417
  Serious: No
  Sender: FDA-Public Use
  Company Number: US-ABBVIE-4227938

PATIENT
  Sex: Female

DRUGS (1)
  1. SKYRIZI [Suspect]
     Active Substance: RISANKIZUMAB-RZAA
     Indication: Psoriasis
     Dosage: FORM STRENGTH: 150 MILLIGRAM ?EVERY 12 WEEK
     Route: 058
     Dates: start: 20220915

REACTIONS (6)
  - Erythema [Unknown]
  - Pruritus [Unknown]
  - Dysuria [Recovering/Resolving]
  - Infection [Unknown]
  - Urinary tract infection [Unknown]
  - Back pain [Recovering/Resolving]
